FAERS Safety Report 6271899-1 (Version None)
Quarter: 2009Q3

REPORT INFORMATION
  Report Type: 
  Country: None (occurrence: None)
  Receive Date: 20090717
  Receipt Date: 20090713
  Transmission Date: 20100115
  Serious: Yes (Life-Threatening, Hospitalization, Other)
  Sender: FDA-Public Use
  Company Number: PHHY2009BR28772

PATIENT
  Age: 45 Year
  Sex: Male
  Weight: 78 kg

DRUGS (6)
  1. LEPONEX [Suspect]
     Indication: SCHIZOPHRENIA
     Dosage: 400 MG DAILY
     Route: 048
  2. LEPONEX [Suspect]
     Dosage: 600 MG, UNK
     Route: 048
  3. LEPONEX [Suspect]
     Dosage: 400 MG ON MORNING AND 400 MG AT NIGHT
     Route: 048
  4. HALDOL [Concomitant]
     Indication: DELIRIUM
     Dosage: 1 DF, Q6H
     Route: 048
  5. CARBOLITIUM [Concomitant]
  6. AKINETON [Concomitant]
     Indication: HYPOTONIA
     Dosage: 1 TABLET DAILY

REACTIONS (13)
  - ABNORMAL BEHAVIOUR [None]
  - AGITATION [None]
  - APPARENT DEATH [None]
  - CEREBROVASCULAR ACCIDENT [None]
  - COMMUNICATION DISORDER [None]
  - DAYDREAMING [None]
  - DELIRIUM [None]
  - DIZZINESS [None]
  - DYSPNOEA [None]
  - INSOMNIA [None]
  - MALAISE [None]
  - OSTEOARTHRITIS [None]
  - TACHYCARDIA [None]
